FAERS Safety Report 15930408 (Version 2)
Quarter: 2019Q1

REPORT INFORMATION
  Report Type: Spontaneous
  Country: JP (occurrence: JP)
  Receive Date: 20190207
  Receipt Date: 20190207
  Transmission Date: 20190417
  Serious: Yes (Hospitalization)
  Sender: FDA-Public Use
  Company Number: GXJP2019JP000539

PATIENT
  Age: 68 Year
  Sex: Male

DRUGS (1)
  1. VALHYDIO [Suspect]
     Active Substance: HYDROCHLOROTHIAZIDE\VALSARTAN
     Indication: HYPERTENSION
     Dosage: UNK
     Route: 048

REACTIONS (2)
  - Cerebral haemorrhage [Unknown]
  - Dysphagia [Unknown]
